FAERS Safety Report 24429302 (Version 1)
Quarter: 2024Q4

REPORT INFORMATION
  Report Type: Spontaneous
  Country: US (occurrence: US)
  Receive Date: 20241011
  Receipt Date: 20241011
  Transmission Date: 20250114
  Serious: Yes (Hospitalization, Other)
  Sender: GLAXOSMITHKLINE
  Company Number: US-GlaxoSmithKline-B0824787A

PATIENT

DRUGS (4)
  1. LAMOTRIGINE [Suspect]
     Active Substance: LAMOTRIGINE
     Indication: Bipolar disorder
     Dosage: 150 MG, QD
     Route: 048
  2. LAMOTRIGINE [Suspect]
     Active Substance: LAMOTRIGINE
     Dosage: 13 G
  3. FLUDROCORTISONE [Suspect]
     Active Substance: FLUDROCORTISONE
     Indication: Product used for unknown indication
     Dosage: 0.1 MG, BID
     Route: 048
  4. FLUDROCORTISONE [Suspect]
     Active Substance: FLUDROCORTISONE
     Indication: Bipolar disorder
     Dosage: 18 G

REACTIONS (31)
  - Toxicity to various agents [Recovered/Resolved]
  - Overdose [Recovered/Resolved]
  - Generalised tonic-clonic seizure [Recovered/Resolved]
  - Delirium [Unknown]
  - Coma [Unknown]
  - Tremor [Unknown]
  - Foaming at mouth [Unknown]
  - Agitation [Recovered/Resolved]
  - Myoclonus [Recovered/Resolved]
  - Blood pressure increased [Unknown]
  - Heart rate increased [Unknown]
  - Tachypnoea [Unknown]
  - Lethargy [Unknown]
  - Anxiety [Unknown]
  - Ataxia [Unknown]
  - Neurotoxicity [Unknown]
  - Sedation [Unknown]
  - Hypertension [Unknown]
  - Tachycardia [Unknown]
  - Moaning [Unknown]
  - Screaming [Unknown]
  - Opisthotonus [Unknown]
  - Restlessness [Unknown]
  - Fall [Unknown]
  - Hypotension [Recovered/Resolved]
  - Gait disturbance [Unknown]
  - Condition aggravated [Unknown]
  - Metabolic acidosis [Recovering/Resolving]
  - Electrocardiogram QRS complex prolonged [Recovering/Resolving]
  - Pneumonia aspiration [Unknown]
  - Rhabdomyolysis [Unknown]
